FAERS Safety Report 25878869 (Version 1)
Quarter: 2025Q4

REPORT INFORMATION
  Report Type: Report from Study
  Country: GB (occurrence: GB)
  Receive Date: 20251003
  Receipt Date: 20251003
  Transmission Date: 20260118
  Serious: Yes (Hospitalization)
  Sender: NOVARTIS
  Company Number: GB-002147023-NVSC2025GB094108

PATIENT
  Sex: Female
  Weight: 71 kg

DRUGS (3)
  1. COSENTYX [Suspect]
     Active Substance: SECUKINUMAB
     Indication: Hidradenitis
     Dosage: 300 MG, QMO
     Route: 058
     Dates: start: 20241204, end: 202502
  2. COSENTYX [Suspect]
     Active Substance: SECUKINUMAB
     Dosage: UNK
     Route: 065
     Dates: start: 20250612
  3. COSENTYX [Suspect]
     Active Substance: SECUKINUMAB
     Dosage: 300 MG
     Route: 058

REACTIONS (8)
  - Sepsis [Unknown]
  - Cellulitis [Recovered/Resolved with Sequelae]
  - Illness [Not Recovered/Not Resolved]
  - Pigmentation disorder [Unknown]
  - Infection [Unknown]
  - Scar [Unknown]
  - Post-traumatic stress disorder [Unknown]
  - Pain [Unknown]

NARRATIVE: CASE EVENT DATE: 20250202
